FAERS Safety Report 9065745 (Version 1)
Quarter: 2013Q1

REPORT INFORMATION
  Report Type: Spontaneous
  Country: US (occurrence: US)
  Receive Date: 20130131
  Receipt Date: 20130131
  Transmission Date: 20140127
  Serious: No
  Sender: FDA-Public Use
  Company Number: US-ABBOTT-12P-163-1023380-00

PATIENT
  Sex: Male
  Weight: 88.53 kg

DRUGS (8)
  1. HUMIRA [Suspect]
     Indication: PSORIATIC ARTHROPATHY
  2. HUMIRA [Suspect]
  3. HUMIRA [Suspect]
     Dates: start: 201211, end: 201212
  4. OXYCODONE [Concomitant]
     Indication: PAIN
  5. EXCEDRIN PM [Concomitant]
     Indication: PRODUCT USED FOR UNKNOWN INDICATION
  6. XANAX [Concomitant]
     Indication: ANXIETY
  7. METHADONE [Concomitant]
     Indication: PAIN
  8. CLONAZEPAM [Concomitant]
     Indication: PRODUCT USED FOR UNKNOWN INDICATION

REACTIONS (4)
  - Joint swelling [Not Recovered/Not Resolved]
  - Arthralgia [Not Recovered/Not Resolved]
  - Motor dysfunction [Not Recovered/Not Resolved]
  - Arthralgia [Not Recovered/Not Resolved]
